FAERS Safety Report 5740257-8 (Version None)
Quarter: 2008Q2

REPORT INFORMATION
  Report Type: 
  Country: None (occurrence: None)
  Receive Date: 20080516
  Receipt Date: 20080512
  Transmission Date: 20081010
  Serious: Yes (Other)
  Sender: FDA-Public Use
  Company Number: GB-BRISTOL-MYERS SQUIBB COMPANY-14187280

PATIENT
  Age: 62 Year
  Sex: Female

DRUGS (2)
  1. CARBOPLATIN [Suspect]
  2. NAVELBINE [Suspect]
     Indication: BREAST CANCER
     Route: 048

REACTIONS (1)
  - RETINAL DISORDER [None]
